FAERS Safety Report 19891836 (Version 2)
Quarter: 2021Q4

REPORT INFORMATION
  Report Type: Report from Study
  Country: US (occurrence: US)
  Receive Date: 20210928
  Receipt Date: 20211118
  Transmission Date: 20220304
  Serious: No
  Sender: FDA-Public Use
  Company Number: US-JAZZ-2020-US-003291

PATIENT
  Sex: Female

DRUGS (28)
  1. XYREM [Suspect]
     Active Substance: SODIUM OXYBATE
     Indication: Narcolepsy
     Dosage: 2.25 GRAM, BID
     Route: 048
     Dates: start: 201909, end: 201910
  2. XYREM [Suspect]
     Active Substance: SODIUM OXYBATE
     Dosage: DOSE ADJUSTMENTS
     Route: 048
     Dates: start: 201910, end: 201910
  3. XYREM [Suspect]
     Active Substance: SODIUM OXYBATE
     Dosage: 4.5 GRAM, BID
     Route: 048
     Dates: start: 201910, end: 201912
  4. VYVANSE [Concomitant]
     Active Substance: LISDEXAMFETAMINE DIMESYLATE
  5. LINZESS [Concomitant]
     Active Substance: LINACLOTIDE
  6. ALIGN [Concomitant]
     Active Substance: BIFIDOBACTERIUM LONGUM SUBSP. INFANTIS
  7. ARMODAFINIL [Concomitant]
     Active Substance: ARMODAFINIL
  8. BETAMETHASONE [Concomitant]
     Active Substance: BETAMETHASONE
  9. CALCITRATE PLUS D [Concomitant]
  10. CLOBETASOL [Concomitant]
     Active Substance: CLOBETASOL
  11. CLONAZEPAM [Concomitant]
     Active Substance: CLONAZEPAM
  12. EFFEXOR [Concomitant]
     Active Substance: VENLAFAXINE HYDROCHLORIDE
  13. FERROUS SULFATE [Concomitant]
     Active Substance: FERROUS SULFATE
  14. FLUTICASONE PROPIONATE [Concomitant]
     Active Substance: FLUTICASONE PROPIONATE
  15. KETOCONAZOLE [Concomitant]
     Active Substance: KETOCONAZOLE
  16. MAGNESIUM OXIDE [Concomitant]
     Active Substance: MAGNESIUM OXIDE
  17. METRONIDAZOLE [Concomitant]
     Active Substance: METRONIDAZOLE
  18. OMEPRAZOLE [Concomitant]
     Active Substance: OMEPRAZOLE
  19. ROBAXIN [Concomitant]
     Active Substance: METHOCARBAMOL
  20. TRIAMCINOLONE [Concomitant]
     Active Substance: TRIAMCINOLONE
  21. TUMS EX [Concomitant]
     Active Substance: CALCIUM CARBONATE
  22. VITAMIN B12 [Concomitant]
     Active Substance: CYANOCOBALAMIN
  23. VITAMIN D3 [Concomitant]
     Active Substance: CHOLECALCIFEROL
  24. VIVELLE-DOT [Concomitant]
     Active Substance: ESTRADIOL
  25. CALCIUM CITRATE [Concomitant]
     Active Substance: CALCIUM CITRATE
  26. CETIRIZINE HCL [Concomitant]
     Active Substance: CETIRIZINE HYDROCHLORIDE
  27. ESTRACE [Concomitant]
     Active Substance: ESTRADIOL
  28. RESTASIS [Concomitant]
     Active Substance: CYCLOSPORINE

REACTIONS (1)
  - Migraine [Unknown]
